FAERS Safety Report 24156407 (Version 2)
Quarter: 2024Q3

REPORT INFORMATION
  Report Type: Spontaneous
  Country: IT (occurrence: IT)
  Receive Date: 20240731
  Receipt Date: 20240815
  Transmission Date: 20241016
  Serious: Yes (Death, Life-Threatening, Hospitalization)
  Sender: PFIZER
  Company Number: IT-ROCHE-10000026549

PATIENT
  Age: 57 Year
  Sex: Female
  Weight: 70 kg

DRUGS (20)
  1. VINCRISTINE SULFATE [Suspect]
     Active Substance: VINCRISTINE SULFATE
     Indication: Richter^s syndrome
     Dosage: 1.4 MG/M2, EVERY 3 WEEKS
     Route: 042
     Dates: start: 20240524, end: 20240524
  2. RITUXIMAB [Suspect]
     Active Substance: RITUXIMAB
     Indication: Richter^s syndrome
     Dosage: 375 MG/M2, EVERY 3 WEEKS
     Route: 042
     Dates: start: 20240524, end: 20240524
  3. DOXORUBICIN HYDROCHLORIDE [Suspect]
     Active Substance: DOXORUBICIN HYDROCHLORIDE
     Indication: Richter^s syndrome
     Dosage: 50 MG/M2, EVERY 3 WEEKS
     Route: 042
     Dates: start: 20240524, end: 20240524
  4. CYCLOPHOSPHAMIDE [Suspect]
     Active Substance: CYCLOPHOSPHAMIDE
     Indication: Richter^s syndrome
     Dosage: UNK
     Dates: start: 20240502
  5. CYCLOPHOSPHAMIDE [Suspect]
     Active Substance: CYCLOPHOSPHAMIDE
     Dosage: 750 MG/M2, EVERY 3 WEEKS
     Route: 042
     Dates: start: 20240524, end: 20240524
  6. PREDNISONE [Suspect]
     Active Substance: PREDNISONE
     Indication: Richter^s syndrome
     Dosage: UNK
     Route: 048
  7. EPCORITAMAB [Suspect]
     Active Substance: EPCORITAMAB
     Indication: Richter^s syndrome
     Dosage: 0.16 MG PRIMING DOSE ON C1D1
     Route: 058
     Dates: start: 20240524, end: 20240524
  8. EPCORITAMAB [Suspect]
     Active Substance: EPCORITAMAB
     Dosage: 0.8 MG INTERMEDIATE DOSE ON C1D8
     Route: 058
     Dates: start: 20240531, end: 20240531
  9. VANCOMYCIN [Concomitant]
     Active Substance: VANCOMYCIN
     Dosage: UNK
     Dates: start: 20240509
  10. CHLORPHENIRAMINE MALEATE [Concomitant]
     Active Substance: CHLORPHENIRAMINE MALEATE
     Dosage: 10 MG
     Route: 042
     Dates: start: 20240524, end: 20240531
  11. PIPERACILLIN SODIUM\TAZOBACTAM SODIUM [Concomitant]
     Active Substance: PIPERACILLIN SODIUM\TAZOBACTAM SODIUM
     Dosage: UNK
     Dates: start: 20240507
  12. DEXAMETHASONE [Concomitant]
     Active Substance: DEXAMETHASONE
     Dosage: UNK
     Dates: start: 20240524, end: 20240604
  13. CASPOFUNGIN [Concomitant]
     Active Substance: CASPOFUNGIN
     Dosage: UNK
     Dates: start: 20240511
  14. ACETAMINOPHEN [Concomitant]
     Active Substance: ACETAMINOPHEN
     Dosage: 1 G
     Route: 048
     Dates: start: 20240524, end: 20240531
  15. FILGRASTIM [Concomitant]
     Active Substance: FILGRASTIM
     Dosage: UNK
     Dates: start: 20240507, end: 20240512
  16. LEVOFLOXACIN [Concomitant]
     Active Substance: LEVOFLOXACIN
     Dosage: UNK
     Dates: start: 202405
  17. RASBURICASE [Concomitant]
     Active Substance: RASBURICASE
     Dosage: UNK
     Dates: start: 20240430
  18. CETRIAXONE [Concomitant]
     Dosage: UNK
     Dates: start: 20240504, end: 20240507
  19. PALONOSETRON [Concomitant]
     Active Substance: PALONOSETRON
     Dosage: UNK
     Dates: start: 20240502
  20. ALBUMIN HUMAN [Concomitant]
     Active Substance: ALBUMIN HUMAN
     Dosage: UNK

REACTIONS (2)
  - Necrotising colitis [Fatal]
  - Respiratory failure [Not Recovered/Not Resolved]

NARRATIVE: CASE EVENT DATE: 20240530
